FAERS Safety Report 16302142 (Version 1)
Quarter: 2019Q2

REPORT INFORMATION
  Report Type: Spontaneous
  Country: US (occurrence: US)
  Receive Date: 20190405
  Receipt Date: 20190405
  Transmission Date: 20190711
  Serious: No
  Sender: FDA-Public Use
  Company Number: None

PATIENT
  Age: 72 Year
  Sex: Female

DRUGS (1)
  1. ORENCIA [Suspect]
     Active Substance: ABATACEPT
     Route: 058
     Dates: start: 201904

REACTIONS (4)
  - Rash [None]
  - Urticaria [None]
  - Flatulence [None]
  - Injection site reaction [None]

NARRATIVE: CASE EVENT DATE: 20190405
